FAERS Safety Report 10342007 (Version 3)
Quarter: 2014Q3

REPORT INFORMATION
  Report Type: Spontaneous
  Country: IT (occurrence: IT)
  Receive Date: 20140725
  Receipt Date: 20140811
  Transmission Date: 20150326
  Serious: Yes (Hospitalization)
  Sender: FDA-Public Use
  Company Number: IT-JNJFOC-20140714924

PATIENT
  Age: 50 Year
  Sex: Female
  Weight: 85 kg

DRUGS (7)
  1. DIBASE [Concomitant]
     Active Substance: CHOLECALCIFEROL
     Dosage: 25000 IU/ 2.5 ML; 2.5DF
     Route: 048
     Dates: start: 20131015, end: 20140708
  2. ARAVA [Concomitant]
     Active Substance: LEFLUNOMIDE
     Route: 048
     Dates: start: 20131015, end: 20140708
  3. DEFLAN [Concomitant]
     Active Substance: DEFLAZACORT
     Route: 048
     Dates: start: 20131015, end: 20140708
  4. REMICADE [Suspect]
     Active Substance: INFLIXIMAB
     Indication: PSORIATIC ARTHROPATHY
     Route: 042
  5. REMICADE [Suspect]
     Active Substance: INFLIXIMAB
     Indication: PSORIATIC ARTHROPATHY
     Dosage: 6TH INFUSION
     Route: 042
     Dates: start: 20140708
  6. KETOPROFEN. [Concomitant]
     Active Substance: KETOPROFEN
     Route: 048
     Dates: start: 20131015, end: 20140708
  7. TRIMETON [Suspect]
     Active Substance: CHLORPHENIRAMINE MALEATE
     Indication: PRODUCT USED FOR UNKNOWN INDICATION
     Dosage: STRENGTH: 100MG
     Route: 042

REACTIONS (5)
  - Pain [Recovered/Resolved]
  - Pulse abnormal [Recovered/Resolved]
  - Dry mouth [Recovered/Resolved]
  - Infusion related reaction [Recovered/Resolved]
  - Tremor [Recovered/Resolved]

NARRATIVE: CASE EVENT DATE: 20140708
